FAERS Safety Report 10421037 (Version 3)
Quarter: 2014Q4

REPORT INFORMATION
  Report Type: Report from Study
  Country: US (occurrence: None)
  Receive Date: 20140828
  Receipt Date: 20141014
  Transmission Date: 20150528
  Serious: Yes (Hospitalization)
  Sender: FDA-Public Use
  Company Number: US-MDCO-14-00177

PATIENT
  Age: 67 Year
  Sex: Female
  Weight: 69 kg

DRUGS (15)
  1. CYCLOBENZAPRINE [Concomitant]
     Active Substance: CYCLOBENZAPRINE
  2. FLUOXETINE [Concomitant]
     Active Substance: FLUOXETINE\FLUOXETINE HYDROCHLORIDE
  3. HYDROCHLOROTHIAZIDE. [Concomitant]
     Active Substance: HYDROCHLOROTHIAZIDE
  4. METOPROLOL [Concomitant]
     Active Substance: METOPROLOL
  5. POTASSIUM CHLORIDE. [Concomitant]
     Active Substance: POTASSIUM CHLORIDE
  6. BIVALIRUDIN [Suspect]
     Active Substance: BIVALIRUDIN
     Indication: ANGIOPLASTY
     Dosage: 25.JUN.2014 AT 13:34 H - 25.JUN.2014 AT 13:34 H?10.5 ML, INTRAVENOUS BOLUS
     Route: 042
     Dates: start: 20140625, end: 20140625
  7. CETIRIZINE [Concomitant]
     Active Substance: CETIRIZINE HYDROCHLORIDE
  8. NAPROXEN SODIUM. [Concomitant]
     Active Substance: NAPROXEN SODIUM
  9. ASPIRIN (ACETYLSALICYLIC ACID) [Concomitant]
     Active Substance: ASPIRIN
  10. CLOPIDOGREL [Concomitant]
     Active Substance: CLOPIDOGREL BISULFATE
  11. GLIPIZIDE. [Concomitant]
     Active Substance: GLIPIZIDE
  12. NITROGLYCERIN (GLYCERYL TRINITRATE) [Concomitant]
  13. ZOLPIDEM [Concomitant]
     Active Substance: ZOLPIDEM\ZOLPIDEM TARTRATE
  14. ZOLPIDEM [Concomitant]
     Active Substance: ZOLPIDEM\ZOLPIDEM TARTRATE
  15. LISINOPRIL. [Concomitant]
     Active Substance: LISINOPRIL

REACTIONS (3)
  - Refusal of treatment by patient [None]
  - Deep vein thrombosis [None]
  - Abdominal wall haematoma [None]

NARRATIVE: CASE EVENT DATE: 20140626
